FAERS Safety Report 5188014-8 (Version None)
Quarter: 2006Q4

REPORT INFORMATION
  Report Type: 
  Country: None (occurrence: None)
  Receive Date: 20061214
  Receipt Date: 20061214
  Transmission Date: 20070319
  Serious: Yes (Other)
  Sender: FDA-Public Use
  Company Number: None

PATIENT
  Age: 34 Year
  Sex: Female
  Weight: 52.1637 kg

DRUGS (4)
  1. CLONAZEPAM [Suspect]
     Indication: ANXIETY
     Dosage: .50 MG ONCE DAILY PO
     Route: 048
     Dates: start: 20060901, end: 20061115
  2. CLONAZEPAM [Suspect]
     Indication: SLEEP DISORDER
     Dosage: .50 MG ONCE DAILY PO
     Route: 048
     Dates: start: 20060901, end: 20061115
  3. ZOLOFT [Suspect]
     Indication: ANXIETY
     Dosage: 100 MG ONCE DAILY PO
     Route: 048
     Dates: start: 20060901, end: 20061115
  4. ZOLOFT [Suspect]
     Indication: DEPRESSION
     Dosage: 100 MG ONCE DAILY PO
     Route: 048
     Dates: start: 20060901, end: 20061115

REACTIONS (12)
  - AMNESIA [None]
  - ANXIETY [None]
  - COGNITIVE DISORDER [None]
  - CONDITION AGGRAVATED [None]
  - DEPRESSION [None]
  - DISTURBANCE IN ATTENTION [None]
  - DYSPNOEA [None]
  - GAIT DISTURBANCE [None]
  - PALPITATIONS [None]
  - SLEEP DISORDER [None]
  - TRANSIENT ISCHAEMIC ATTACK [None]
  - VISUAL DISTURBANCE [None]
